FAERS Safety Report 4627724-5 (Version None)
Quarter: 2005Q2

REPORT INFORMATION
  Report Type: 
  Country: None (occurrence: None)
  Receive Date: 20050401
  Receipt Date: 20050323
  Transmission Date: 20051028
  Serious: Yes (Hospitalization)
  Sender: FDA-Public Use
  Company Number: RENA-11307

PATIENT
  Age: 71 Year
  Sex: Male

DRUGS (17)
  1. PHOSBLOCK - 250 MG TABLETS [Suspect]
     Indication: HYPERPHOSPHATAEMIA
     Dosage: 1 G BID PO
     Route: 048
     Dates: start: 20040325
  2. SORBITOL [Concomitant]
  3. SENNOSIDE [Concomitant]
  4. MEXILETINE HYDROCHLORIDE [Concomitant]
  5. NICORANDIL [Concomitant]
  6. ESTAZOLAM [Concomitant]
  7. ETHYL LOFLAZEPATE [Concomitant]
  8. FAMOTIDINE [Concomitant]
  9. AMEZINIUM METILSULFATE [Concomitant]
  10. NITRAZEPAM [Concomitant]
  11. AMLODIPINE BESYLATE [Concomitant]
  12. SARPOGRELATE HYDROCHLORIDE [Concomitant]
  13. TEPRENONE [Concomitant]
  14. ASPIRIN [Concomitant]
  15. EPOETIN BETA [Concomitant]
  16. MAXACALCITOL [Concomitant]
  17. ALPROSTADIL [Concomitant]

REACTIONS (3)
  - CONDITION AGGRAVATED [None]
  - CONSTIPATION [None]
  - INTESTINAL HAEMORRHAGE [None]
